FAERS Safety Report 6132175-0 (Version None)
Quarter: 2009Q1

REPORT INFORMATION
  Report Type: 
  Country: None (occurrence: None)
  Receive Date: 20090325
  Receipt Date: 20090324
  Transmission Date: 20090719
  Serious: Yes (Other)
  Sender: FDA-Public Use
  Company Number: B0565917A

PATIENT
  Age: 27 Year
  Sex: Female

DRUGS (9)
  1. PAROXETINE HYDROCHLORIDE [Suspect]
     Indication: DRUG USE FOR UNKNOWN INDICATION
     Route: 048
  2. PAROXETINE HYDROCHLORIDE [Suspect]
     Route: 048
  3. BROMAZEPAM [Concomitant]
     Indication: ANXIETY
     Dosage: 4MG PER DAY
  4. CHLORPROMAZINE [Concomitant]
     Indication: ILL-DEFINED DISORDER
     Dosage: 50MG PER DAY
  5. VALPROATE SODIUM [Concomitant]
     Dosage: 200MG PER DAY
  6. RISPERIDONE [Concomitant]
     Dosage: 5MG PER DAY
  7. BIPERIDEN HYDROCHLORIDE TAB [Concomitant]
     Dosage: 2MG PER DAY
  8. BROMAZEPAM [Concomitant]
     Dosage: 6MG PER DAY
  9. NITRAZEPAM [Concomitant]
     Dosage: 10MG PER DAY

REACTIONS (3)
  - ACTIVATION SYNDROME [None]
  - AGITATION [None]
  - MOOD ALTERED [None]
